FAERS Safety Report 8352992-6 (Version None)
Quarter: 2012Q2

REPORT INFORMATION
  Report Type: 
  Country: None (occurrence: None)
  Receive Date: 20120511
  Receipt Date: 20120430
  Transmission Date: 20120825
  Serious: Yes (Hospitalization)
  Sender: FDA-Public Use
  Company Number: US-NOVOPROD-348511

PATIENT
  Age: 60 Year
  Sex: Male
  Weight: 121.54 kg

DRUGS (5)
  1. LANTUS [Concomitant]
     Indication: TYPE 2 DIABETES MELLITUS
     Dosage: TAKE UP TO 80 U, QD AS INSTRUCTED
     Route: 058
  2. NOVOLOG [Suspect]
     Indication: TYPE 2 DIABETES MELLITUS
     Dosage: TAKE UP TO 80 U, QD TOTAL AS INSTRUCTED
     Route: 058
     Dates: start: 20120215
  3. CRESTOR [Concomitant]
     Indication: PRODUCT USED FOR UNKNOWN INDICATION
     Dosage: 20 MG (1 TABLET), QD
     Route: 048
  4. PRILOSEC [Concomitant]
     Indication: GASTROOESOPHAGEAL REFLUX DISEASE
     Dosage: 20 MG, QD (1 TAB EVERY MORNING BEFORE BREAKFAST)
     Route: 048
  5. CHOLINE FENOFIBRATE [Concomitant]
     Indication: PRODUCT USED FOR UNKNOWN INDICATION
     Dosage: 135 MG, QD
     Route: 048

REACTIONS (1)
  - CHOLECYSTITIS [None]
